FAERS Safety Report 9939602 (Version 5)
Quarter: 2015Q4

REPORT INFORMATION
  Report Type: Spontaneous
  Country: DE (occurrence: DE)
  Receive Date: 20140303
  Receipt Date: 20151113
  Transmission Date: 20160305
  Serious: Yes (Other)
  Sender: FDA-Public Use
  Company Number: DE-ELI_LILLY_AND_COMPANY-DE201402007933

PATIENT
  Sex: Female

DRUGS (3)
  1. ZYPREXA [Suspect]
     Active Substance: OLANZAPINE
     Dosage: 10 MG, QD
     Route: 065
  2. ZYPREXA [Suspect]
     Active Substance: OLANZAPINE
     Indication: PRODUCT USED FOR UNKNOWN INDICATION
     Dosage: 5 MG, QD
     Route: 065
     Dates: start: 1996, end: 2011
  3. ZYPREXA [Suspect]
     Active Substance: OLANZAPINE
     Dosage: 30 MG, QD
     Route: 065

REACTIONS (18)
  - Dental pulp disorder [Not Recovered/Not Resolved]
  - Tooth deposit [Unknown]
  - Dental plaque [Unknown]
  - Stomatitis [Not Recovered/Not Resolved]
  - Pancreatic disorder [Not Recovered/Not Resolved]
  - Dry mouth [Not Recovered/Not Resolved]
  - Binge eating [Unknown]
  - Bruxism [Unknown]
  - Jaw disorder [Unknown]
  - Gingival recession [Not Recovered/Not Resolved]
  - Tooth injury [Not Recovered/Not Resolved]
  - Dental caries [Unknown]
  - Gingival atrophy [Not Recovered/Not Resolved]
  - Saliva altered [Unknown]
  - Prescribed overdose [Unknown]
  - Weight increased [Not Recovered/Not Resolved]
  - Insulin resistance [Unknown]
  - Diabetes mellitus [Unknown]

NARRATIVE: CASE EVENT DATE: 20021024
